FAERS Safety Report 24580005 (Version 4)
Quarter: 2025Q1

REPORT INFORMATION
  Report Type: Spontaneous
  Country: JP (occurrence: JP)
  Receive Date: 20241105
  Receipt Date: 20250307
  Transmission Date: 20250408
  Serious: No
  Sender: JOHNSON AND JOHNSON
  Company Number: JP-JNJFOC-20241104580

PATIENT
  Age: 80 Year
  Sex: Female

DRUGS (17)
  1. UPTRAVI [Suspect]
     Active Substance: SELEXIPAG
     Indication: Pulmonary hypertension
     Route: 048
     Dates: start: 20220913, end: 20221005
  2. UPTRAVI [Suspect]
     Active Substance: SELEXIPAG
     Route: 048
     Dates: start: 20221006, end: 20221019
  3. UPTRAVI [Suspect]
     Active Substance: SELEXIPAG
     Route: 048
     Dates: start: 20221020
  4. UPTRAVI [Suspect]
     Active Substance: SELEXIPAG
     Route: 048
  5. ADEMPAS [Suspect]
     Active Substance: RIOCIGUAT
     Indication: Pulmonary hypertension
     Route: 048
     Dates: end: 20220916
  6. ADEMPAS [Suspect]
     Active Substance: RIOCIGUAT
     Dosage: THERAPY END DATE FOR 2ND THERAPY IS: -SEP-2022
     Route: 048
     Dates: start: 20220917, end: 202209
  7. ADEMPAS [Suspect]
     Active Substance: RIOCIGUAT
     Route: 048
     Dates: start: 202209, end: 202210
  8. ADEMPAS [Suspect]
     Active Substance: RIOCIGUAT
     Dosage: THERAPY END DATE IS -SEP-2022
     Route: 048
     Dates: start: 202210
  9. WARFARIN POTASSIUM [Suspect]
     Active Substance: WARFARIN POTASSIUM
     Indication: Product used for unknown indication
     Route: 048
     Dates: start: 202209
  10. WARFARIN POTASSIUM [Suspect]
     Active Substance: WARFARIN POTASSIUM
     Route: 048
  11. FUROSEMIDE [Suspect]
     Active Substance: FUROSEMIDE
     Indication: Product used for unknown indication
     Route: 048
  12. REBAMIPIDE [Suspect]
     Active Substance: REBAMIPIDE
     Indication: Product used for unknown indication
     Route: 065
  13. REBAMIPIDE [Suspect]
     Active Substance: REBAMIPIDE
     Route: 065
  14. MIROGABALIN BESYLATE [Suspect]
     Active Substance: MIROGABALIN BESYLATE
     Indication: Product used for unknown indication
     Route: 048
  15. REBAMIPIDE [Suspect]
     Active Substance: REBAMIPIDE
     Indication: Product used for unknown indication
     Route: 065
  16. REBAMIPIDE [Suspect]
     Active Substance: REBAMIPIDE
     Route: 065
  17. ELIQUIS [Concomitant]
     Active Substance: APIXABAN
     Indication: Pulmonary embolism
     Dates: end: 202209

REACTIONS (2)
  - Back pain [Recovered/Resolved]
  - Hypotension [Recovering/Resolving]

NARRATIVE: CASE EVENT DATE: 20221015
